FAERS Safety Report 24866707 (Version 1)
Quarter: 2025Q1

REPORT INFORMATION
  Report Type: Spontaneous
  Country: BR (occurrence: BR)
  Receive Date: 20250121
  Receipt Date: 20250121
  Transmission Date: 20250408
  Serious: Yes (Hospitalization, Other)
  Sender: NOVAST LABORATORIES LTD
  Company Number: BR-NOVAST LABORATORIES INC.-2025NOV000002

PATIENT
  Age: 62 Year
  Sex: Female

DRUGS (4)
  1. CARBOPLATIN [Suspect]
     Active Substance: CARBOPLATIN
     Indication: Invasive ductal breast carcinoma
     Route: 042
  2. DOCETAXEL [Suspect]
     Active Substance: DOCETAXEL
     Indication: Invasive ductal breast carcinoma
     Route: 042
  3. TRASTUZUMAB [Suspect]
     Active Substance: TRASTUZUMAB
     Indication: Invasive ductal breast carcinoma
     Route: 042
  4. TRASTUZUMAB [Suspect]
     Active Substance: TRASTUZUMAB
     Route: 042

REACTIONS (7)
  - Osteonecrosis of jaw [Recovering/Resolving]
  - Gastrointestinal candidiasis [Unknown]
  - Gingival hypertrophy [Unknown]
  - Myelosuppression [Unknown]
  - Thrombocytopenia [Unknown]
  - Hypokalaemia [Unknown]
  - Product use in unapproved indication [Unknown]
